FAERS Safety Report 15504544 (Version 1)
Quarter: 2018Q4

REPORT INFORMATION
  Report Type: Spontaneous
  Country: US (occurrence: US)
  Receive Date: 20181009
  Receipt Date: 20181009
  Transmission Date: 20190205
  Serious: No
  Sender: FDA-Public Use
  Company Number: None

PATIENT
  Sex: Female

DRUGS (2)
  1. PHENTERMINE 30 MG KVK-TECH [Suspect]
     Active Substance: PHENTERMINE
  2. TOPAMAX [Suspect]
     Active Substance: TOPIRAMATE

REACTIONS (1)
  - Treatment failure [None]
